FAERS Safety Report 7958506-4 (Version None)
Quarter: 2011Q4

REPORT INFORMATION
  Report Type: 
  Country: None (occurrence: None)
  Receive Date: 20111206
  Receipt Date: 20111202
  Transmission Date: 20120403
  Serious: Yes (Other)
  Sender: FDA-Public Use
  Company Number: US-BIOGENIDEC-2011BI036210

PATIENT
  Age: 25 Year
  Sex: Female

DRUGS (2)
  1. MARIJUANNA [Concomitant]
  2. TYSABRI [Suspect]
     Indication: MULTIPLE SCLEROSIS
     Route: 042
     Dates: start: 20091229

REACTIONS (1)
  - ABORTION SPONTANEOUS [None]
